FAERS Safety Report 10177256 (Version 1)
Quarter: 2014Q2

REPORT INFORMATION
  Report Type: Spontaneous
  Country: US (occurrence: US)
  Receive Date: 20140516
  Receipt Date: 20140516
  Transmission Date: 20141212
  Serious: Yes (Hospitalization)
  Sender: FDA-Public Use
  Company Number: US-VIIV HEALTHCARE LIMITED-A1072991A

PATIENT
  Age: 47 Year
  Sex: Male

DRUGS (2)
  1. EPZICOM [Suspect]
     Indication: HIV INFECTION
     Dosage: 1TAB PER DAY
     Route: 048
     Dates: start: 2004
  2. REYATAZ [Concomitant]

REACTIONS (11)
  - Cerebellar haemorrhage [Recovering/Resolving]
  - Diverticulitis [Recovering/Resolving]
  - Road traffic accident [Recovering/Resolving]
  - Haematochezia [Recovering/Resolving]
  - Sarcoma [Recovering/Resolving]
  - Multiple fractures [Recovering/Resolving]
  - Syncope [Recovering/Resolving]
  - Weight decreased [Recovering/Resolving]
  - Fall [Recovering/Resolving]
  - Memory impairment [Recovering/Resolving]
  - Contusion [Recovering/Resolving]
